FAERS Safety Report 4382334-2 (Version None)
Quarter: 2004Q2

REPORT INFORMATION
  Report Type: 
  Country: None (occurrence: None)
  Receive Date: 20040622
  Receipt Date: 20040611
  Transmission Date: 20050107
  Serious: Yes (Hospitalization)
  Sender: FDA-Public Use
  Company Number: PHBS2004CH07714

PATIENT
  Age: 63 Year
  Sex: Male

DRUGS (9)
  1. VOLTAREN [Suspect]
  2. MARCOUMAR [Suspect]
     Indication: PROPHYLAXIS
     Dates: end: 20040528
  3. ASPIRIN [Suspect]
     Indication: PROPHYLAXIS
     Dosage: 100 MG/DAY
     Dates: end: 20040528
  4. PLAVIX [Suspect]
     Indication: PROPHYLAXIS
     Dosage: 75 MG/DAY
     Dates: end: 20040528
  5. FLUVOXAMINE [Suspect]
     Indication: DEPRESSION
  6. MOLSIDOMINE [Concomitant]
     Dosage: 4 MG/DAY
  7. PRAVASTATIN SODIUM [Concomitant]
     Dosage: 20 MG/DAY
  8. TORSEMIDE [Concomitant]
     Dosage: 5 MG/DAY
  9. RENITEN [Concomitant]
     Dosage: 10 MG/DAY

REACTIONS (15)
  - ANAEMIA [None]
  - ANOREXIA [None]
  - ASTHENIA [None]
  - CHEST PAIN [None]
  - GASTROINTESTINAL HAEMORRHAGE [None]
  - HAEMOGLOBIN DECREASED [None]
  - HYPOTENSION [None]
  - LOOSE STOOLS [None]
  - MELAENA [None]
  - PROTHROMBIN TIME PROLONGED [None]
  - SCIATICA [None]
  - SYNCOPE [None]
  - TACHYCARDIA [None]
  - VERTIGO [None]
  - VOMITING [None]
